FAERS Safety Report 9209183 (Version 1)
Quarter: 2013Q1

REPORT INFORMATION
  Report Type: Spontaneous
  Country: US (occurrence: None)
  Receive Date: 20120820
  Receipt Date: 20120820
  Transmission Date: 20140127
  Serious: No
  Sender: FDA-Public Use
  Company Number: 1000031116

PATIENT
  Age: 81 Year
  Sex: Male

DRUGS (21)
  1. VIIBRYD (VILAZODONE)(10 MILLIGRAM, TABLETS) [Suspect]
     Indication: PAIN
     Route: 048
     Dates: start: 20120606, end: 20120606
  2. ACARBOSE(ACARBOSE)(ACARBOSE) [Concomitant]
  3. ALBUTEROL(ALBUTEROL)(ALBUTEROL) [Concomitant]
  4. ANACIN (ASPIRIN, CAFFEINE)(ASPIRIN, CAFFEINE) [Concomitant]
  5. ASTHMANEX(MOMETASONE)(MOMETASONE) [Concomitant]
  6. CALCITRIOL(CALCITRIOL) [Concomitant]
  7. FORADIL(FORMOTEROL FUMARATE)(FORMOTEROL FUMARTE) [Concomitant]
  8. GUAIFENESIN(GUAFENESIN)(GUAIFENESIN) [Concomitant]
  9. HYDROCHLOROTHIAZIDE(HYDROCHLROTHIAZIDE)(HYDROCHLORTHIAZIDE) [Concomitant]
  10. JANUVIA (SITAGLIPTIN PHOSPHATE) (SITAGLIPTIN PHOSPHATE) [Concomitant]
  11. LEVOTHYROXINE (LEVOTHYROXINE SODIUM) (LEVOTHYROXINE SODIUM) [Concomitant]
  12. LORAZEPAM (LORAZEPAM) (LORAZEPAM) [Concomitant]
  13. SINGULAIR [Concomitant]
  14. POTASSIUM (POTASSIUM) (POTASSIUM) [Concomitant]
  15. PREDNISONE (PREDNISONE) (PREDNISONE) [Concomitant]
  16. PRILOSEC (OMEPRAZOLE) (OMEPRAZOLE) [Concomitant]
  17. SIMVASTATIN (SIMVASTATIN) (SIMVASTATIN) [Concomitant]
  18. VITAMIN C (VITAMIN C) (VITAMIN C) [Concomitant]
  19. VITAMIN D3 (COLECALCIFEROL) (COLECALCIFEROL) [Concomitant]
  20. ZINC (ZINC) (ZINC) [Concomitant]
  21. TERAZOSIN (TERAZOSIN) (TERAZOSIN) [Concomitant]

REACTIONS (4)
  - Diarrhoea [None]
  - Nausea [None]
  - Dyspnoea [None]
  - Off label use [None]
